FAERS Safety Report 9494729 (Version 3)
Quarter: 2014Q1

REPORT INFORMATION
  Report Type: Spontaneous
  Country: US (occurrence: US)
  Receive Date: 20130903
  Receipt Date: 20140114
  Transmission Date: 20141002
  Serious: Yes (Other)
  Sender: FDA-Public Use
  Company Number: US-PFIZER INC-2013249835

PATIENT
  Sex: Male

DRUGS (2)
  1. VIAGRA [Suspect]
     Dosage: UNK
  2. VIAGRA [Suspect]
     Dosage: 3X/DAY

REACTIONS (5)
  - Penile curvature [Unknown]
  - Penile erythema [Unknown]
  - Pruritus genital [Unknown]
  - Erection increased [Unknown]
  - Inappropriate schedule of drug administration [Unknown]
